FAERS Safety Report 5644957-X (Version None)
Quarter: 2008Q1

REPORT INFORMATION
  Report Type: 
  Country: None (occurrence: None)
  Receive Date: 20080229
  Receipt Date: 20071121
  Transmission Date: 20080703
  Serious: No
  Sender: FDA-Public Use
  Company Number: A0695636A

PATIENT
  Sex: Female

DRUGS (1)
  1. VALTREX [Suspect]
     Indication: GENITAL HERPES
     Route: 048
     Dates: start: 20060801

REACTIONS (1)
  - BLOOD TEST ABNORMAL [None]
